FAERS Safety Report 11434041 (Version 4)
Quarter: 2015Q4

REPORT INFORMATION
  Report Type: Spontaneous
  Country: JP (occurrence: JP)
  Receive Date: 20150831
  Receipt Date: 20151019
  Transmission Date: 20160304
  Serious: Yes (Death, Hospitalization, Other)
  Sender: FDA-Public Use
  Company Number: JP-PFIZER INC-2015181964

PATIENT
  Age: 74 Year
  Sex: Male
  Weight: 58.2 kg

DRUGS (2)
  1. XALKORI [Suspect]
     Active Substance: CRIZOTINIB
     Indication: NON-SMALL CELL LUNG CANCER
     Dosage: 250 MG, 2X/DAY
     Route: 048
     Dates: start: 20150501, end: 20150630
  2. XALKORI [Suspect]
     Active Substance: CRIZOTINIB
     Dosage: 250 MG, 2X/DAY
     Route: 045
     Dates: start: 20150807, end: 20150820

REACTIONS (8)
  - Non-small cell lung cancer [Fatal]
  - Bradycardia [Not Recovered/Not Resolved]
  - Neutrophil count decreased [Not Recovered/Not Resolved]
  - Disease progression [Fatal]
  - Hepatic atrophy [Not Recovered/Not Resolved]
  - Oedema [Recovering/Resolving]
  - Blood albumin decreased [Not Recovered/Not Resolved]
  - Intentional product misuse [Unknown]

NARRATIVE: CASE EVENT DATE: 20150504
